FAERS Safety Report 23952585 (Version 1)
Quarter: 2024Q2

REPORT INFORMATION
  Report Type: Report from Study
  Country: CA (occurrence: CA)
  Receive Date: 20240607
  Receipt Date: 20240607
  Transmission Date: 20240715
  Serious: Yes (Other)
  Sender: FDA-Public Use
  Company Number: CA-Amarin Pharma  Inc-2024AMR000282

PATIENT
  Age: 61 Year
  Sex: Female

DRUGS (3)
  1. VASCEPA [Suspect]
     Active Substance: ICOSAPENT ETHYL
     Indication: Cardiovascular event prophylaxis
     Dates: start: 20200525, end: 202401
  2. VITAMIN D NOS [Suspect]
     Active Substance: CHOLECALCIFEROL\ERGOCALCIFEROL
     Indication: Osteopenia
     Dosage: UNKNOWN
  3. CALCIUM [Suspect]
     Active Substance: CALCIUM
     Indication: Osteopenia
     Dosage: UNKNOWN

REACTIONS (6)
  - Gastritis erosive [Unknown]
  - Diabetes mellitus inadequate control [Unknown]
  - Lipodystrophy acquired [Unknown]
  - Osteopenia [Unknown]
  - Renal colic [Unknown]
  - Palpitations [Recovering/Resolving]

NARRATIVE: CASE EVENT DATE: 20240101
